FAERS Safety Report 19125044 (Version 1)
Quarter: 2021Q2

REPORT INFORMATION
  Report Type: Spontaneous
  Country: US (occurrence: US)
  Receive Date: 20210413
  Receipt Date: 20210413
  Transmission Date: 20210717
  Serious: Yes (Other)
  Sender: FDA-Public Use
  Company Number: US-SA-2021SA117520

PATIENT
  Sex: Female

DRUGS (4)
  1. DUPIXENT [Suspect]
     Active Substance: DUPILUMAB
     Indication: DERMATITIS ATOPIC
     Dosage: UNK, QOW
     Route: 058
  2. TYLENOL [Concomitant]
     Active Substance: ACETAMINOPHEN
  3. MUCINEX [Suspect]
     Active Substance: GUAIFENESIN
  4. TRAMADOL. [Concomitant]
     Active Substance: TRAMADOL

REACTIONS (12)
  - Throat irritation [Not Recovered/Not Resolved]
  - Dry skin [Unknown]
  - Hallucination, visual [Not Recovered/Not Resolved]
  - Cough [Not Recovered/Not Resolved]
  - Arthritis [Not Recovered/Not Resolved]
  - Fall [Unknown]
  - Dermatitis acneiform [Not Recovered/Not Resolved]
  - Haemorrhoids [Not Recovered/Not Resolved]
  - Rib fracture [Unknown]
  - Abdominal discomfort [Unknown]
  - Pain [Not Recovered/Not Resolved]
  - Pruritus [Unknown]
